FAERS Safety Report 13471039 (Version 1)
Quarter: 2017Q2

REPORT INFORMATION
  Report Type: Spontaneous
  Country: US (occurrence: US)
  Receive Date: 20170421
  Receipt Date: 20170421
  Transmission Date: 20170830
  Serious: Yes (Other)
  Sender: FDA-Public Use
  Company Number: None

PATIENT
  Age: 3 Day
  Sex: Male

DRUGS (1)
  1. IMATINIB 100 MG RANBAXY [Suspect]
     Active Substance: IMATINIB
     Indication: ACUTE MYELOID LEUKAEMIA
     Route: 048
     Dates: start: 20160323

REACTIONS (2)
  - Diplopia [None]
  - Macular oedema [None]

NARRATIVE: CASE EVENT DATE: 20170406
